FAERS Safety Report 9958176 (Version 1)
Quarter: 2014Q1

REPORT INFORMATION
  Report Type: Spontaneous
  Country: US (occurrence: US)
  Receive Date: 20140304
  Receipt Date: 20140304
  Transmission Date: 20141002
  Serious: No
  Sender: FDA-Public Use
  Company Number: US-ABBVIE-13P-163-1095150-00

PATIENT
  Sex: Female
  Weight: 77.18 kg

DRUGS (7)
  1. HUMIRA [Suspect]
     Indication: RHEUMATOID ARTHRITIS
     Dates: start: 2009
  2. METHOTREXATE [Concomitant]
     Indication: RHEUMATOID ARTHRITIS
     Dates: start: 2009
  3. MELOXICAM [Concomitant]
     Indication: RHEUMATOID ARTHRITIS
     Dates: start: 2009
  4. PREDNISONE [Concomitant]
     Indication: RHEUMATOID ARTHRITIS
     Dosage: 5 MG ONE DAY, 2.5 MG ON ALTERNATING DAY
     Dates: start: 2009
  5. CALCIUM [Concomitant]
     Indication: MINERAL SUPPLEMENTATION
  6. TYLENOL ARTHRITIS [Concomitant]
     Indication: ARTHRALGIA
  7. NAPROSYN [Concomitant]
     Indication: ARTHRALGIA
     Dates: start: 2013

REACTIONS (2)
  - Amnesia [Not Recovered/Not Resolved]
  - Weight increased [Not Recovered/Not Resolved]
